FAERS Safety Report 5705788-5 (Version None)
Quarter: 2008Q2

REPORT INFORMATION
  Report Type: 
  Country: None (occurrence: None)
  Receive Date: 20080415
  Receipt Date: 20080410
  Transmission Date: 20081010
  Serious: Yes (Other)
  Sender: FDA-Public Use
  Company Number: JP-ASTRAZENECA-2008AP02652

PATIENT
  Age: 57 Year
  Sex: Female

DRUGS (3)
  1. CRESTOR [Suspect]
     Indication: LIPIDS ABNORMAL
     Dosage: ALTERNATIVE-DAY ADMINISTRATION
     Route: 048
     Dates: start: 20070125, end: 20080323
  2. ALLEGRA [Concomitant]
     Dosage: DOSE UNKNOWN
     Route: 048
  3. TALION [Concomitant]
     Dosage: DOSE UNKNOWN
     Route: 048

REACTIONS (1)
  - ECZEMA [None]
